FAERS Safety Report 7236328-X (Version None)
Quarter: 2011Q1

REPORT INFORMATION
  Report Type: 
  Country: None (occurrence: None)
  Receive Date: 20110120
  Receipt Date: 20110119
  Transmission Date: 20110831
  Serious: Yes (Disabling, Other)
  Sender: FDA-Public Use
  Company Number: GB-PFIZER INC-2010093789

PATIENT
  Age: 60 Year
  Sex: Female
  Weight: 61.35 kg

DRUGS (4)
  1. VINCRISTINE [Suspect]
     Indication: T-CELL LYMPHOMA
     Dosage: 2 MIU ONCE EVERY THREE WEEKS
     Route: 042
     Dates: start: 20080523, end: 20081017
  2. PREDNISOLONE [Suspect]
     Indication: T-CELL LYMPHOMA
     Dosage: 1000 MG, FIVE TIMES EVERY THREE WEEKS
     Route: 048
     Dates: start: 20080523, end: 20081017
  3. CYCLOPHOSPHAMIDE [Suspect]
     Indication: T-CELL LYMPHOMA
     Dosage: 1200 MG, EVERY 3 WEEKS
     Route: 042
     Dates: start: 20080523, end: 20081017
  4. DOXORUBICIN HCL [Suspect]
     Indication: T-CELL LYMPHOMA
     Dosage: UNK
     Route: 042
     Dates: start: 20080523, end: 20081017

REACTIONS (2)
  - BLINDNESS [None]
  - POSTERIOR REVERSIBLE ENCEPHALOPATHY SYNDROME [None]
